FAERS Safety Report 9123252 (Version 1)
Quarter: 2013Q1

REPORT INFORMATION
  Report Type: Spontaneous
  Country: US (occurrence: US)
  Receive Date: 20130227
  Receipt Date: 20130227
  Transmission Date: 20140127
  Serious: Yes (Other)
  Sender: FDA-Public Use
  Company Number: US-ROXANE LABORATORIES, INC.-2013-RO-00280RO

PATIENT
  Age: 15 Month
  Sex: Male

DRUGS (2)
  1. PREDNISONE [Suspect]
     Indication: IMMUNOSUPPRESSANT DRUG THERAPY
  2. TACROLIMUS [Suspect]
     Indication: IMMUNOSUPPRESSANT DRUG THERAPY

REACTIONS (2)
  - Castleman^s disease [Recovered/Resolved]
  - Cholangitis [Unknown]
